FAERS Safety Report 24843251 (Version 1)
Quarter: 2025Q1

REPORT INFORMATION
  Report Type: Report from Study
  Country: US (occurrence: US)
  Receive Date: 20250115
  Receipt Date: 20250115
  Transmission Date: 20250409
  Serious: No
  Sender: HRA PHARMA
  Company Number: US-ORG100014127-2021001486

PATIENT
  Age: 52 Year
  Sex: Male

DRUGS (5)
  1. LYSODREN [Suspect]
     Active Substance: MITOTANE
     Indication: Adrenal gland cancer
     Dosage: 01 TABLET TWICE DAILY
     Route: 048
     Dates: start: 20210201
  2. LYSODREN [Suspect]
     Active Substance: MITOTANE
     Indication: Adrenal gland cancer
     Dosage: 03 TABLETS BY MOUTH 2 TIMES DAILY
     Route: 048
     Dates: start: 20210202
  3. Levothyroxin TAB 25 mcg [Concomitant]
     Indication: Product used for unknown indication
  4. Prednisone TAB 20 Mg [Concomitant]
     Indication: Product used for unknown indication
  5. LENVIMA [Concomitant]
     Active Substance: LENVATINIB
     Indication: Product used for unknown indication

REACTIONS (4)
  - Nasopharyngitis [Recovering/Resolving]
  - Brain fog [Not Recovered/Not Resolved]
  - Somnolence [Not Recovered/Not Resolved]
  - Fatigue [Not Recovered/Not Resolved]

NARRATIVE: CASE EVENT DATE: 20210101
